FAERS Safety Report 10253010 (Version 3)
Quarter: 2016Q4

REPORT INFORMATION
  Report Type: Spontaneous
  Country: US (occurrence: US)
  Receive Date: 20140623
  Receipt Date: 20161227
  Transmission Date: 20170206
  Serious: Yes (Other)
  Sender: FDA-Public Use
  Company Number: US-PFIZER INC-2014171003

PATIENT
  Age: 54 Year
  Sex: Female
  Weight: 124.72 kg

DRUGS (1)
  1. CHANTIX [Suspect]
     Active Substance: VARENICLINE TARTRATE
     Dosage: UNK

REACTIONS (3)
  - Suicidal ideation [Unknown]
  - Depression [Unknown]
  - Drug hypersensitivity [Unknown]
